FAERS Safety Report 5739466-3 (Version None)
Quarter: 2008Q2

REPORT INFORMATION
  Report Type: 
  Country: None (occurrence: None)
  Receive Date: 20080513
  Receipt Date: 20080502
  Transmission Date: 20081010
  Serious: Yes (Death, Hospitalization)
  Sender: FDA-Public Use
  Company Number: 2008-02811

PATIENT
  Age: 67 Year
  Sex: Female

DRUGS (6)
  1. PREDNISONE [Suspect]
     Indication: IMMUNOSUPPRESSANT DRUG THERAPY
     Dosage: 5 MG, DAILY
  2. PREDNISONE [Suspect]
     Indication: RENAL TRANSPLANT
     Dosage: 5 MG, DAILY
  3. AZATHIOPRINE [Suspect]
     Indication: IMMUNOSUPPRESSANT DRUG THERAPY
     Dosage: 150 MG, DAILY
  4. AZATHIOPRINE [Suspect]
     Indication: RENAL TRANSPLANT
     Dosage: 150 MG, DAILY
  5. CYCLOSPORINE [Suspect]
     Indication: IMMUNOSUPPRESSANT DRUG THERAPY
     Dosage: 100 MG, DAILY
  6. CYCLOSPORINE [Suspect]
     Indication: RENAL TRANSPLANT
     Dosage: 100 MG, DAILY

REACTIONS (2)
  - PLEURAL EFFUSION [None]
  - PRIMARY EFFUSION LYMPHOMA [None]
